FAERS Safety Report 6187058-7 (Version None)
Quarter: 2009Q2

REPORT INFORMATION
  Report Type: 
  Country: None (occurrence: None)
  Receive Date: 20090512
  Receipt Date: 20090507
  Transmission Date: 20091009
  Serious: Yes (Death, Disabling, Other)
  Sender: FDA-Public Use
  Company Number: US-PURDUE-USA_2007_0028973

PATIENT
  Age: 32 Year
  Sex: Male
  Weight: 84 kg

DRUGS (6)
  1. OXYCODONE HCL [Concomitant]
     Indication: BREAKTHROUGH PAIN
     Dosage: 5 MG, UNK
  2. XANAX [Concomitant]
     Indication: ANXIETY
     Dosage: 1 MG, UNK
  3. NEURONTIN [Concomitant]
     Dosage: 300 UNK, UNK
  4. LEXAPRO [Concomitant]
     Dosage: 10 MG, UNK
  5. DIAZEPAM [Suspect]
     Indication: DRUG USE FOR UNKNOWN INDICATION
  6. OXYCONTIN [Suspect]
     Indication: BACK PAIN
     Dosage: 20 MG, SEE TEXT
     Route: 048
     Dates: start: 20030401

REACTIONS (7)
  - ANXIETY [None]
  - DEFORMITY [None]
  - DISABILITY [None]
  - DRUG DEPENDENCE [None]
  - DRUG INEFFECTIVE [None]
  - MULTIPLE DRUG OVERDOSE ACCIDENTAL [None]
  - PAIN [None]
